FAERS Safety Report 4688790-4 (Version None)
Quarter: 2005Q2

REPORT INFORMATION
  Report Type: 
  Country: None (occurrence: None)
  Receive Date: 20050610
  Receipt Date: 20050610
  Transmission Date: 20051028
  Serious: Yes (Other)
  Sender: FDA-Public Use
  Company Number: None

PATIENT
  Sex: Female
  Weight: 73.9363 kg

DRUGS (6)
  1. COMBIVIR [Suspect]
     Indication: BILIARY CIRRHOSIS PRIMARY
     Dosage: ONE BID PO
     Route: 048
     Dates: start: 20040808, end: 20050118
  2. METOPROLOL [Concomitant]
  3. TRIAMTERENE AND HYDROCHLOROTHIAZIDE [Concomitant]
  4. URSODIOL [Concomitant]
  5. M.V.I. [Concomitant]
  6. GLUCOSAMINE CHONDROITIN [Concomitant]

REACTIONS (1)
  - BREAST CANCER FEMALE [None]
